FAERS Safety Report 12510059 (Version 1)
Quarter: 2016Q2

REPORT INFORMATION
  Report Type: Spontaneous
  Country: US (occurrence: US)
  Receive Date: 20160629
  Receipt Date: 20160629
  Transmission Date: 20160815
  Serious: No
  Sender: FDA-Public Use
  Company Number: US-RB-077102-15

PATIENT
  Age: 69 Year
  Sex: Female

DRUGS (2)
  1. MUCINEX [Suspect]
     Active Substance: GUAIFENESIN
     Indication: COUGH
     Dosage: . ,QD
     Route: 065
  2. MUCINEX [Suspect]
     Active Substance: GUAIFENESIN
     Indication: LOWER RESPIRATORY TRACT INFECTION

REACTIONS (5)
  - Bladder disorder [Recovered/Resolved]
  - Vaginal disorder [Recovered/Resolved]
  - Dry mouth [Recovered/Resolved]
  - Vitreous floaters [Recovered/Resolved]
  - Incorrect drug administration duration [Recovered/Resolved]

NARRATIVE: CASE EVENT DATE: 201502
